FAERS Safety Report 4553921-3 (Version None)
Quarter: 2005Q1

REPORT INFORMATION
  Report Type: 
  Country: None (occurrence: None)
  Receive Date: 20050118
  Receipt Date: 20041222
  Transmission Date: 20050727
  Serious: Yes (Death, Other)
  Sender: FDA-Public Use
  Company Number: PHBS2004JP17318

PATIENT
  Age: 13 Year
  Sex: Male

DRUGS (2)
  1. CYCLOSPORINE [Suspect]
     Indication: BONE MARROW TRANSPLANT
     Dates: start: 20021001
  2. CORTICOSTEROIDS [Suspect]
     Indication: BONE MARROW TRANSPLANT

REACTIONS (11)
  - COUGH [None]
  - DIFFUSE ALVEOLAR DAMAGE [None]
  - DYSPNOEA [None]
  - GENERALISED OEDEMA [None]
  - GRAFT VERSUS HOST DISEASE [None]
  - HAEMOPTYSIS [None]
  - HEPATIC FUNCTION ABNORMAL [None]
  - OLIGURIA [None]
  - PERICARDIAL EFFUSION [None]
  - PLATELET COUNT DECREASED [None]
  - PULMONARY ALVEOLAR HAEMORRHAGE [None]
